FAERS Safety Report 6718440-4 (Version None)
Quarter: 2010Q2

REPORT INFORMATION
  Report Type: 
  Country: None (occurrence: None)
  Receive Date: 20100510
  Receipt Date: 20100426
  Transmission Date: 20101027
  Serious: Yes (Hospitalization)
  Sender: FDA-Public Use
  Company Number: IT-MYLANLABS-2010S1007163

PATIENT
  Age: 66 Year
  Sex: Female

DRUGS (5)
  1. DULOXETINE HYDROCHLORIDE [Suspect]
     Indication: SUICIDE ATTEMPT
     Dosage: NINE 60MG TABLETS
  2. TRAZODONE HCL [Suspect]
     Indication: SUICIDE ATTEMPT
     Dosage: NINE 75MG TABLETS
  3. VENLAFAXINE [Suspect]
     Indication: SUICIDE ATTEMPT
     Dosage: UNKNOWN QUANTITY OF 75MG TABLETS
  4. SERTRALINE HCL [Suspect]
     Indication: SUICIDE ATTEMPT
     Dosage: UNKNOWN QUANTITY OF 50MG TABLETS
  5. CLONAZEPAM [Suspect]
     Indication: SUICIDE ATTEMPT
     Dosage: UNKNOWN QUANTITY OF 0.125MG DROPS

REACTIONS (5)
  - AZOTAEMIA [None]
  - ELECTROCARDIOGRAM QT PROLONGED [None]
  - HYPOTENSION [None]
  - INTENTIONAL OVERDOSE [None]
  - MENTAL STATUS CHANGES [None]
